FAERS Safety Report 7942038-3 (Version None)
Quarter: 2011Q4

REPORT INFORMATION
  Report Type: 
  Country: None (occurrence: None)
  Receive Date: 20111128
  Receipt Date: 20111118
  Transmission Date: 20120403
  Serious: Yes (Hospitalization, Other)
  Sender: FDA-Public Use
  Company Number: US-BAYER-201035012NA

PATIENT
  Age: 17 Year
  Sex: Female
  Weight: 92 kg

DRUGS (2)
  1. YAZ [Suspect]
  2. YASMIN [Suspect]
     Indication: PRODUCT USED FOR UNKNOWN INDICATION
     Dosage: UNK UNK, UNK
     Route: 048
     Dates: start: 20060301, end: 20070401

REACTIONS (9)
  - DYSPEPSIA [None]
  - CHOLECYSTITIS [None]
  - DEPRESSION [None]
  - DIARRHOEA [None]
  - ANXIETY [None]
  - CHOLECYSTECTOMY [None]
  - SCAR [None]
  - FLATULENCE [None]
  - CONSTIPATION [None]
